FAERS Safety Report 6984338-X (Version None)
Quarter: 2010Q3

REPORT INFORMATION
  Report Type: 
  Country: None (occurrence: None)
  Receive Date: 20100915
  Receipt Date: 20100903
  Transmission Date: 20110219
  Serious: Yes (Other)
  Sender: FDA-Public Use
  Company Number: PHHY2010NL58221

PATIENT
  Sex: Male

DRUGS (2)
  1. ZOMETA [Suspect]
     Dosage: 4MG/5ML
  2. ZOMETA [Suspect]
     Dosage: 4MG/5ML
     Dates: start: 20100805

REACTIONS (1)
  - GENERAL PHYSICAL HEALTH DETERIORATION [None]
